FAERS Safety Report 4978229-3 (Version None)
Quarter: 2006Q2

REPORT INFORMATION
  Report Type: 
  Country: None (occurrence: None)
  Receive Date: 20060414
  Receipt Date: 20060405
  Transmission Date: 20061013
  Serious: Yes (Hospitalization)
  Sender: FDA-Public Use
  Company Number: 2006-04-0398

PATIENT
  Age: 50 Year
  Sex: Female

DRUGS (3)
  1. PEG-INTRON [Suspect]
     Dosage: 35 MCG
  2. DURAGESIC TOPICALS [Suspect]
     Indication: PAIN
     Dosage: 2-3 PATCHES TOPICAL
     Route: 061
  3. DURAGESIC TOPICALS [Suspect]
     Indication: SKIN ULCER
     Dosage: 2-3 PATCHES TOPICAL
     Route: 061

REACTIONS (5)
  - CONFUSIONAL STATE [None]
  - HALLUCINATION [None]
  - INCORRECT DOSE ADMINISTERED [None]
  - INTUBATION [None]
  - MENTAL STATUS CHANGES [None]
